FAERS Safety Report 16423755 (Version 4)
Quarter: 2020Q1

REPORT INFORMATION
  Report Type: Spontaneous
  Country: JP (occurrence: JP)
  Receive Date: 20190613
  Receipt Date: 20200318
  Transmission Date: 20200409
  Serious: Yes (Hospitalization, Disabling, Other)
  Sender: FDA-Public Use
  Company Number: JP-009507513-1906JPN001047J

PATIENT
  Age: 71 Year
  Sex: Male
  Weight: 67 kg

DRUGS (8)
  1. PANVITAN [Concomitant]
     Active Substance: VITAMINS
     Indication: PROPHYLAXIS
     Dosage: 1 GRAM, QD
     Route: 048
     Dates: start: 20190417
  2. LIXIANA [Concomitant]
     Active Substance: EDOXABAN TOSYLATE
     Indication: DEEP VEIN THROMBOSIS
     Dosage: 60 MILLIGRAM, QD
     Route: 048
     Dates: start: 20190417
  3. KEYTRUDA [Suspect]
     Active Substance: PEMBROLIZUMAB
     Indication: NON-SMALL CELL LUNG CANCER
     Dosage: 200 MILLIGRAM, Q3W
     Route: 041
     Dates: start: 20190418
  4. CISPLATIN. [Suspect]
     Active Substance: CISPLATIN
     Indication: NON-SMALL CELL LUNG CANCER
     Dosage: 75 MILLIGRAM/SQ. METER (120MG/BODY), Q3W
     Route: 041
     Dates: start: 20190418, end: 20190515
  5. TAMSULOSIN HYDROCHLORIDE OD [Concomitant]
     Active Substance: TAMSULOSIN HYDROCHLORIDE
     Indication: BENIGN PROSTATIC HYPERPLASIA
     Dosage: 0.2 MILLIGRAM, QD
     Route: 048
     Dates: start: 20190320
  6. ALIMTA [Concomitant]
     Active Substance: PEMETREXED DISODIUM
     Indication: NON-SMALL CELL LUNG CANCER
     Dosage: 500 MILLIGRAM/SQ. METER (840MG/BODY), Q3W
     Route: 041
     Dates: start: 20190418
  7. DEXTROMETHORPHAN HYDROBROMIDE. [Concomitant]
     Active Substance: DEXTROMETHORPHAN HYDROBROMIDE
     Indication: COUGH
     Dosage: 15 MILLIGRAM, TID
     Route: 048
     Dates: start: 20190320
  8. ANORO [Concomitant]
     Active Substance: UMECLIDINIUM BROMIDE\VILANTEROL TRIFENATATE
     Indication: CHRONIC OBSTRUCTIVE PULMONARY DISEASE
     Dosage: 1 DOSAGE FORM, QD
     Route: 055
     Dates: start: 20190320

REACTIONS (3)
  - Thrombophlebitis [Recovering/Resolving]
  - Sudden hearing loss [Recovered/Resolved with Sequelae]
  - Cellulitis [Recovering/Resolving]

NARRATIVE: CASE EVENT DATE: 20190604
